FAERS Safety Report 25699603 (Version 2)
Quarter: 2025Q3

REPORT INFORMATION
  Report Type: Spontaneous
  Country: EU (occurrence: EU)
  Receive Date: 20250819
  Receipt Date: 20250913
  Transmission Date: 20251021
  Serious: Yes (Hospitalization)
  Sender: AUROBINDO
  Company Number: EU-RBHC-20-25-POL-RB-0015072

PATIENT
  Age: 63 Year
  Sex: Female

DRUGS (8)
  1. IBUPROFEN [Suspect]
     Active Substance: IBUPROFEN
     Indication: Product used for unknown indication
     Route: 048
  2. ASPIRIN [Suspect]
     Active Substance: ASPIRIN
     Indication: Chest pain
     Dosage: 75 MILLIGRAM, ONCE A DAY
     Route: 048
  3. ASPIRIN [Suspect]
     Active Substance: ASPIRIN
     Indication: Immune tolerance induction
  4. CLOPIDOGREL [Concomitant]
     Active Substance: CLOPIDOGREL BISULFATE
     Indication: Chronic coronary syndrome
     Dosage: 75 MILLIGRAM, ONCE A DAY
     Route: 065
  5. METOPROLOL [Concomitant]
     Active Substance: METOPROLOL
     Indication: Chronic coronary syndrome
     Dosage: 50 MILLIGRAM, ONCE A DAY
     Route: 065
  6. RAMIPRIL [Concomitant]
     Active Substance: RAMIPRIL
     Indication: Chronic coronary syndrome
     Dosage: 2.5 MILLIGRAM, ONCE A DAY
     Route: 065
  7. BUDESONIDE\FORMOTEROL [Concomitant]
     Active Substance: BUDESONIDE\FORMOTEROL
     Indication: Chronic coronary syndrome
     Dosage: UNK, ONCE A DAY (UNKNOWN (320 + 9 UG/DAY), QD)
     Route: 065
  8. TIOTROPIUM [Concomitant]
     Active Substance: TIOTROPIUM
     Indication: Chronic obstructive pulmonary disease
     Dosage: 18 MICROGRAM, ONCE A DAY
     Route: 065

REACTIONS (3)
  - Swelling [Recovered/Resolved]
  - Swelling of eyelid [Recovered/Resolved]
  - Mouth swelling [Recovered/Resolved]
